FAERS Safety Report 9060443 (Version 1)
Quarter: 2013Q1

REPORT INFORMATION
  Report Type: Spontaneous
  Country: US (occurrence: US)
  Receive Date: 20130212
  Receipt Date: 20130212
  Transmission Date: 20140127
  Serious: Yes (Death)
  Sender: FDA-Public Use
  Company Number: US-BRISTOL-MYERS SQUIBB COMPANY-17342965

PATIENT
  Age: 74 Year
  Sex: Female

DRUGS (15)
  1. ABATACEPT SUBQ INJECTION 125MG/ML [Suspect]
     Route: 058
  2. JANUVIA [Concomitant]
     Dosage: TABS
  3. AMLODIPINE [Concomitant]
     Dosage: TABS
  4. METHOTREXATE TABS [Concomitant]
  5. LANTUS [Concomitant]
     Dosage: 1DF:100/ML;INJ
  6. LISINOPRIL [Concomitant]
     Dosage: TABS
  7. TORSEMIDE [Concomitant]
     Dosage: TABS
  8. GLYBURIDE [Concomitant]
     Dosage: TABS
  9. VENTOLIN [Concomitant]
     Dosage: AER
  10. ADVAIR DISKUS [Concomitant]
     Dosage: 1DF: 250/50;AER
  11. VITAMIN B12 [Concomitant]
     Dosage: TABS
  12. PLAVIX TABS [Concomitant]
  13. BYSTOLIC [Concomitant]
     Dosage: TABS
  14. SPIRIVA [Concomitant]
     Dosage: CAP HANDIHLR
  15. LOSARTAN POTASSIUM [Concomitant]
     Dosage: TABS

REACTIONS (1)
  - Death [Fatal]
